FAERS Safety Report 9337536 (Version 2)
Quarter: 2013Q2

REPORT INFORMATION
  Report Type: Spontaneous
  Country: US (occurrence: US)
  Receive Date: 20130607
  Receipt Date: 20130621
  Transmission Date: 20140414
  Serious: Yes (Death)
  Sender: FDA-Public Use
  Company Number: CHPA2013US009471

PATIENT
  Age: 73 Year
  Sex: Female

DRUGS (3)
  1. LAMISIL AF DEFENSE SHAKE POWDER [Suspect]
     Indication: DECUBITUS ULCER
     Dosage: APPLIED TO THE BUTTOCKS AND GROIN AREA, BID
     Route: 048
     Dates: start: 2000, end: 20101201
  2. LAMISIL AF DEFENSE SHAKE POWDER [Suspect]
     Indication: RASH
  3. GLUCERNA [Suspect]
     Dosage: UNK, UNK
     Route: 048
     Dates: end: 20101201

REACTIONS (5)
  - Asphyxia [Fatal]
  - Choking [Fatal]
  - Therapeutic response unexpected [Unknown]
  - Off label use [Unknown]
  - Drug administered at inappropriate site [Unknown]
